FAERS Safety Report 23714079 (Version 1)
Quarter: 2024Q2

REPORT INFORMATION
  Report Type: Spontaneous
  Country: US (occurrence: US)
  Receive Date: 20240405
  Receipt Date: 20240405
  Transmission Date: 20240716
  Serious: No
  Sender: FDA-Public Use
  Company Number: US-BoehringerIngelheim-2024-BI-020357

PATIENT

DRUGS (2)
  1. OFEV [Suspect]
     Active Substance: NINTEDANIB
     Indication: Product used for unknown indication
     Dosage: 150 MG
  2. OFEV [Suspect]
     Active Substance: NINTEDANIB
     Dosage: 100 MG

REACTIONS (2)
  - Diarrhoea [Unknown]
  - Dehydration [Unknown]
